FAERS Safety Report 16154845 (Version 2)
Quarter: 2019Q2

REPORT INFORMATION
  Report Type: Spontaneous
  Country: TR (occurrence: TR)
  Receive Date: 20190403
  Receipt Date: 20190503
  Transmission Date: 20190711
  Serious: Yes (Hospitalization, Other)
  Sender: FDA-Public Use
  Company Number: TR-PFIZER INC-2019141137

PATIENT
  Age: 58 Year
  Sex: Male

DRUGS (1)
  1. AMIODARONE HCL [Suspect]
     Active Substance: AMIODARONE HYDROCHLORIDE
     Indication: VENTRICULAR ARRHYTHMIA
     Dosage: 200 MG, DAILY (SEVERAL YEARS)
     Route: 065

REACTIONS (9)
  - Condition aggravated [Unknown]
  - Sinus tachycardia [Unknown]
  - Polyuria [Unknown]
  - Polydipsia [Unknown]
  - Hyperthyroidism [Unknown]
  - Diabetic ketoacidosis [Unknown]
  - Thyroxine free increased [Unknown]
  - Palpitations [Unknown]
  - Hyperhidrosis [Unknown]
